FAERS Safety Report 23435565 (Version 2)
Quarter: 2024Q2

REPORT INFORMATION
  Report Type: Report from Study
  Country: CA (occurrence: CA)
  Receive Date: 20240124
  Receipt Date: 20240503
  Transmission Date: 20240715
  Serious: Yes (Other)
  Sender: FDA-Public Use
  Company Number: CA-TAKEDA-2024TUS002647

PATIENT
  Age: 34 Year
  Sex: Female

DRUGS (3)
  1. VEDOLIZUMAB [Suspect]
     Active Substance: VEDOLIZUMAB
     Indication: Crohn^s disease
     Dosage: 300 MILLIGRAM
     Route: 042
     Dates: start: 20221116
  2. VEDOLIZUMAB [Suspect]
     Active Substance: VEDOLIZUMAB
     Indication: Crohn^s disease
     Dosage: 108 MILLIGRAM, Q2WEEKS
     Route: 058
     Dates: start: 20230221
  3. STELARA [Concomitant]
     Active Substance: USTEKINUMAB
     Dosage: UNK, Q4WEEKS
     Route: 058
     Dates: start: 2021

REACTIONS (7)
  - Anastomotic ulcer [Unknown]
  - Ileal ulcer [Unknown]
  - Faeces soft [Unknown]
  - Fistula [Unknown]
  - Therapeutic reaction time decreased [Unknown]
  - Abdominal pain [Unknown]
  - Anal fissure [Unknown]

NARRATIVE: CASE EVENT DATE: 20231201
